FAERS Safety Report 8505807-7 (Version None)
Quarter: 2012Q2

REPORT INFORMATION
  Report Type: 
  Country: None (occurrence: None)
  Receive Date: 20120629
  Receipt Date: 20120615
  Transmission Date: 20120825
  Serious: Yes (Death, Hospitalization)
  Sender: FDA-Public Use
  Company Number: ENTC2010-0248

PATIENT
  Sex: Female

DRUGS (3)
  1. STALEVO 50 [Suspect]
  2. ASPIRIN [Concomitant]
  3. PEXOLA [Concomitant]

REACTIONS (5)
  - URINARY TRACT INFECTION [None]
  - CACHEXIA [None]
  - MALNUTRITION [None]
  - HYPERHIDROSIS [None]
  - SOMNOLENCE [None]
